FAERS Safety Report 9314053 (Version 1)
Quarter: 2013Q2

REPORT INFORMATION
  Report Type: Spontaneous
  Country: US (occurrence: None)
  Receive Date: 20130524
  Receipt Date: 20130524
  Transmission Date: 20140414
  Serious: Yes (Hospitalization)
  Sender: FDA-Public Use
  Company Number: None

PATIENT
  Age: 55 Year
  Sex: Female
  Weight: 65.77 kg

DRUGS (5)
  1. KEPPRA (LEVETIRACETAM) [Suspect]
     Indication: CONVULSION
     Dosage: 6 PILLS  3 PILLS 2X PER DAY  BY MOUTH?I STARTED WEANING FROM PRODUCT IN AUGUST 2012 -
     Route: 048
     Dates: end: 201301
  2. DILANTIN [Concomitant]
  3. WOMENS MULTI VITAMIN [Concomitant]
  4. BCOMPLEX [Concomitant]
  5. CA VITAMIN D [Concomitant]

REACTIONS (3)
  - Grand mal convulsion [None]
  - Renal failure acute [None]
  - Urinary retention [None]
